FAERS Safety Report 5232452-1 (Version None)
Quarter: 2007Q1

REPORT INFORMATION
  Report Type: 
  Country: None (occurrence: None)
  Receive Date: 20070205
  Receipt Date: 20070124
  Transmission Date: 20070707
  Serious: Yes (Hospitalization)
  Sender: FDA-Public Use
  Company Number: 231983

PATIENT
  Age: 77 Year
  Sex: Male

DRUGS (3)
  1. RITUXAN [Suspect]
     Indication: RHEUMATOID ARTHRITIS
     Dosage: 1000 MG, ODX2D/14DC, INTRAVENOUS
     Route: 042
     Dates: start: 20060603
  2. VICODIN [Concomitant]
  3. ANTIHYPERTENSIVE MEDS (ANTIHYPERTENSIVE NOS) [Concomitant]

REACTIONS (2)
  - EXFOLIATIVE RASH [None]
  - SCRATCH [None]
